FAERS Safety Report 19184345 (Version 1)
Quarter: 2021Q2

REPORT INFORMATION
  Report Type: Spontaneous
  Country: FI (occurrence: FI)
  Receive Date: 20210427
  Receipt Date: 20210427
  Transmission Date: 20210717
  Serious: Yes (Hospitalization, Other)
  Sender: FDA-Public Use
  Company Number: FI-GLAXOSMITHKLINE-FI2021090184

PATIENT
  Age: 40 Year
  Sex: Female

DRUGS (6)
  1. OPAMOX [Concomitant]
     Active Substance: OXAZEPAM
     Indication: INSOMNIA
     Dosage: 15,MG,DAILY
     Route: 048
     Dates: start: 20210224, end: 20210303
  2. ABSENOR [Concomitant]
     Indication: INSOMNIA
     Dosage: 300,MG,DAILY
     Route: 048
     Dates: start: 20210211, end: 20210217
  3. LAMICTAL [Suspect]
     Active Substance: LAMOTRIGINE
     Indication: ANXIETY
     Dosage: UNK
     Route: 048
     Dates: start: 20210127, end: 20210314
  4. AZONA [Concomitant]
     Indication: DEPRESSION
     Dosage: 200,MG,DAILY
     Route: 048
     Dates: start: 20180501
  5. TENOX (TEMAZEPAM) [Concomitant]
     Active Substance: TEMAZEPAM
     Indication: INSOMNIA
     Dosage: 30,MG,DAILY
     Route: 048
     Dates: start: 20210205, end: 20210210
  6. TRUXAL [Concomitant]
     Active Substance: CHLORPROTHIXENE
     Indication: INSOMNIA
     Dosage: UNK
     Route: 048
     Dates: start: 20210306, end: 20210310

REACTIONS (9)
  - Visual impairment [Recovered/Resolved]
  - Panic attack [Recovered/Resolved]
  - Headache [Recovered/Resolved]
  - Constipation [Recovered/Resolved]
  - Chest discomfort [Recovered/Resolved]
  - Anxiety [Recovered/Resolved]
  - Nocturia [Recovered/Resolved]
  - Insomnia [Recovered/Resolved]
  - Loss of consciousness [Recovered/Resolved]

NARRATIVE: CASE EVENT DATE: 20210203
